FAERS Safety Report 6167687-7 (Version None)
Quarter: 2009Q2

REPORT INFORMATION
  Report Type: 
  Country: None (occurrence: None)
  Receive Date: 20090424
  Receipt Date: 20090416
  Transmission Date: 20091009
  Serious: Yes (Other)
  Sender: FDA-Public Use
  Company Number: US-GENENTECH-277217

PATIENT
  Sex: Female
  Weight: 46.3 kg

DRUGS (4)
  1. RITUXIMAB [Suspect]
     Indication: RHEUMATOID ARTHRITIS
     Dosage: 1000 MG, Q2W
     Route: 042
     Dates: start: 20080114, end: 20080207
  2. METHOTREXATE [Concomitant]
     Indication: RHEUMATOID ARTHRITIS
     Dosage: 17.5 MG, 1/WEEK
     Route: 048
     Dates: start: 20060101
  3. LEFLUNOMIDE [Concomitant]
     Indication: DRUG USE FOR UNKNOWN INDICATION
     Dosage: 20 MG, QD
  4. PREDNISONE [Concomitant]
     Indication: RHEUMATOID ARTHRITIS
     Dosage: 20 MG, QD
     Route: 048

REACTIONS (2)
  - ABORTION SPONTANEOUS [None]
  - PREGNANCY [None]
